FAERS Safety Report 6096333-6 (Version None)
Quarter: 2009Q1

REPORT INFORMATION
  Report Type: 
  Country: None (occurrence: None)
  Receive Date: 20090227
  Receipt Date: 20090105
  Transmission Date: 20090719
  Serious: Yes (Other)
  Sender: FDA-Public Use
  Company Number: A0756472A

PATIENT
  Sex: Female

DRUGS (2)
  1. LAMICTAL [Suspect]
     Indication: BIPOLAR DISORDER
     Dosage: 25MG PER DAY
     Route: 048
     Dates: start: 20081023, end: 20081026
  2. EFFEXOR [Concomitant]

REACTIONS (6)
  - GINGIVAL BLISTER [None]
  - ORAL DISCOMFORT [None]
  - ORAL DISORDER [None]
  - OROPHARYNGEAL BLISTERING [None]
  - PAIN [None]
  - STEVENS-JOHNSON SYNDROME [None]
